FAERS Safety Report 18791555 (Version 1)
Quarter: 2021Q1

REPORT INFORMATION
  Report Type: Spontaneous
  Country: US (occurrence: US)
  Receive Date: 20210126
  Receipt Date: 20210126
  Transmission Date: 20210419
  Serious: No
  Sender: FDA-Public Use
  Company Number: US-PERRIGO-20US000659

PATIENT
  Age: 10 Year
  Sex: Female
  Weight: 35.92 kg

DRUGS (1)
  1. IBUPROFEN. [Suspect]
     Active Substance: IBUPROFEN
     Indication: PYREXIA
     Dosage: UNKNOWN, QD
     Route: 048
     Dates: start: 20200113, end: 20200114

REACTIONS (6)
  - Pruritus [Not Recovered/Not Resolved]
  - Swelling face [Recovering/Resolving]
  - Swollen tongue [Recovering/Resolving]
  - Urticaria [Recovering/Resolving]
  - Rash [Recovering/Resolving]
  - Erythema [Not Recovered/Not Resolved]

NARRATIVE: CASE EVENT DATE: 20200113
